FAERS Safety Report 9719454 (Version 1)
Quarter: 2013Q4

REPORT INFORMATION
  Report Type: Report from Study
  Country: US (occurrence: US)
  Receive Date: 20131128
  Receipt Date: 20131128
  Transmission Date: 20140711
  Serious: Yes (Hospitalization)
  Sender: FDA-Public Use
  Company Number: US-ROCHE-1306907

PATIENT
  Sex: Female

DRUGS (11)
  1. AVASTIN [Suspect]
     Indication: COLON CANCER
     Route: 065
     Dates: start: 2010
  2. AVASTIN [Suspect]
     Route: 042
  3. XELODA [Suspect]
     Indication: COLON CANCER
     Dosage: TAKE 2 TABS PO BID X14DAYS THEN OFF FOR 7
     Route: 048
  4. XELODA [Suspect]
     Dosage: TAKE 1 TAB PO BID  X 14 DAYS THEN OFF 7
     Route: 048
  5. ALOXI [Concomitant]
     Route: 042
  6. DEXAMETHASONE [Concomitant]
     Route: 042
  7. EMEND [Concomitant]
     Route: 042
  8. ZANTAC [Concomitant]
     Route: 042
  9. HEPARIN SODIUM [Concomitant]
  10. BENADRYL (UNITED STATES) [Concomitant]
     Route: 042
  11. OXALIPLATIN [Concomitant]
     Route: 042

REACTIONS (3)
  - Intestinal obstruction [Not Recovered/Not Resolved]
  - Weight decreased [Unknown]
  - Dehydration [Unknown]
